FAERS Safety Report 5234387-7 (Version None)
Quarter: 2007Q1

REPORT INFORMATION
  Report Type: 
  Country: None (occurrence: None)
  Receive Date: 20070209
  Receipt Date: 20070205
  Transmission Date: 20070707
  Serious: Yes (Other)
  Sender: FDA-Public Use
  Company Number: DE-ROCHE-477876

PATIENT
  Age: 50 Year
  Sex: Female
  Weight: 60 kg

DRUGS (1)
  1. BONVIVA [Suspect]
     Indication: OSTEOPOROSIS
     Route: 048
     Dates: start: 20060915, end: 20061115

REACTIONS (4)
  - ARTHRALGIA [None]
  - CARDIOVASCULAR DISORDER [None]
  - NAUSEA [None]
  - VOMITING [None]
